FAERS Safety Report 5271896-9 (Version None)
Quarter: 2007Q1

REPORT INFORMATION
  Report Type: 
  Country: None (occurrence: None)
  Receive Date: 20070316
  Receipt Date: 20070305
  Transmission Date: 20070707
  Serious: Yes (Other)
  Sender: FDA-Public Use
  Company Number: CHNY2007CA1007

PATIENT
  Age: 63 Year
  Sex: Female
  Weight: 59 kg

DRUGS (6)
  1. EXACT TRANSDERMAL NICOTINE PATCH (NCH)(NICOTINE) TRANS-THERAPEUTIC-SYS [Suspect]
     Indication: SMOKING CESSATION THERAPY
     Dosage: 21 MG, QD, TRANSDERMAL
     Route: 062
     Dates: start: 20070214
  2. MONOPRIL [Concomitant]
  3. LIPITOR [Concomitant]
  4. PREMERIN [Concomitant]
  5. ATIVAN [Concomitant]
  6. NOVOGABATENTIN [Concomitant]

REACTIONS (5)
  - ABDOMINAL PAIN UPPER [None]
  - CHEST PAIN [None]
  - MYALGIA [None]
  - TREATMENT NONCOMPLIANCE [None]
  - UNEVALUABLE EVENT [None]
